FAERS Safety Report 6689209-4 (Version None)
Quarter: 2010Q2

REPORT INFORMATION
  Report Type: 
  Country: None (occurrence: None)
  Receive Date: 20100413
  Receipt Date: 20100406
  Transmission Date: 20101027
  Serious: Yes (Hospitalization)
  Sender: FDA-Public Use
  Company Number: 2009SP021087

PATIENT
  Age: 23 Year
  Sex: Female
  Weight: 49.8957 kg

DRUGS (2)
  1. NUVARING [Suspect]
     Indication: DRUG USE FOR UNKNOWN INDICATION
     Dosage: VAG
     Route: 067
     Dates: start: 20050315, end: 20051001
  2. ALBUTEROL [Concomitant]

REACTIONS (6)
  - ARTERIAL THROMBOSIS LIMB [None]
  - DEEP VEIN THROMBOSIS [None]
  - FEAR OF DEATH [None]
  - INSOMNIA [None]
  - PULSE ABSENT [None]
  - THORACIC OUTLET SYNDROME [None]
